FAERS Safety Report 8436379-3 (Version None)
Quarter: 2012Q2

REPORT INFORMATION
  Report Type: 
  Country: None (occurrence: None)
  Receive Date: 20120614
  Receipt Date: 20110420
  Transmission Date: 20120825
  Serious: No
  Sender: FDA-Public Use
  Company Number: US-NOVEN-11US002316

PATIENT
  Age: 8 Year
  Sex: Female

DRUGS (1)
  1. DAYTRANA [Suspect]
     Dosage: 20 MG, QD
     Route: 062

REACTIONS (2)
  - NO ADVERSE EVENT [None]
  - DRUG DOSE OMISSION [None]
